FAERS Safety Report 7753651-0 (Version None)
Quarter: 2011Q3

REPORT INFORMATION
  Report Type: 
  Country: None (occurrence: None)
  Receive Date: 20110913
  Receipt Date: 20110901
  Transmission Date: 20111222
  Serious: Yes (Death)
  Sender: FDA-Public Use
  Company Number: 1000023496

PATIENT
  Age: 84 Year
  Sex: Male

DRUGS (16)
  1. PLAVIX (CLOPIDOGREL BISULFATE) (CLOPIDOGREL BISULFATE) [Concomitant]
  2. MEMANTINE [Suspect]
     Indication: DEMENTIA ALZHEIMER'S TYPE
     Dosage: 20 MG (20 MG, 1 IN 1 D), ORAL
     Route: 048
     Dates: start: 20110725, end: 20110901
  3. NORVASC [Concomitant]
  4. ARICEPT D (DONEPEZIL HYDROCHLORIDE) (DONEPEZIL HYDROCHLORIDE) [Concomitant]
  5. GRAMALIL(TIAPRIDE HYDROCHLORIDE) (DILTIAZEM HYDROCHLORIDE) [Concomitant]
  6. HARNAL D (TAMSULOSIN HYDROCHLROIDE) (TAMSULOSIN HYDROCHLORIDE) [Concomitant]
  7. EPLERENONE [Concomitant]
  8. HERBESSER (DILTIAZEM HYDROCHLORIDE) (DILTIAZEM HYDROCHLORIDE) [Concomitant]
  9. MEMANTINE [Suspect]
     Indication: DEMENTIA ALZHEIMER'S TYPE
     Dosage: ORAL
     Route: 048
     Dates: end: 20110701
  10. OLMESARTAN MEDOXOMIL [Concomitant]
  11. YOKUKAN-SAN (HERBAL EXTRACT NOS) (HERBAL EXTRACT NOS) [Concomitant]
  12. ZOLPIDEM TARTRATE [Concomitant]
  13. CRAVIT (LEVOFLOXACIN) (SOLUTION) (LEVOFLOXACIN) [Concomitant]
  14. STAYBLA (IMIDAFENACIN) (IMIDAFENACIN) [Concomitant]
  15. OPALMON (LIMAPROST ALFADEX) (LIMAPROST ALFADEX) [Concomitant]
  16. DORAL [Concomitant]

REACTIONS (4)
  - POLLAKIURIA [None]
  - ASTHENIA [None]
  - DROWNING [None]
  - INSOMNIA [None]
